FAERS Safety Report 10085725 (Version 2)
Quarter: 2014Q2

REPORT INFORMATION
  Report Type: Spontaneous
  Country: US (occurrence: None)
  Receive Date: 20140416
  Receipt Date: 20140530
  Transmission Date: 20141212
  Serious: Yes (Other)
  Sender: FDA-Public Use
  Company Number: HA14-127-AE

PATIENT
  Age: 76 Year
  Sex: Female
  Weight: 62.6 kg

DRUGS (3)
  1. AMLODIPINE BESYLATE [Suspect]
     Indication: PRODUCT USED FOR UNKNOWN INDICATION
     Route: 048
     Dates: end: 201312
  2. VERAPAMIL [Concomitant]
  3. LISINOPRIL [Concomitant]

REACTIONS (5)
  - Cough [None]
  - Fatigue [None]
  - Malaise [None]
  - Depression [None]
  - Thinking abnormal [None]
